FAERS Safety Report 17705515 (Version 2)
Quarter: 2020Q2

REPORT INFORMATION
  Report Type: Spontaneous
  Country: US (occurrence: US)
  Receive Date: 20200424
  Receipt Date: 20200604
  Transmission Date: 20200714
  Serious: No
  Sender: FDA-Public Use
  Company Number: US-ASTRAZENECA-2020SE47436

PATIENT
  Sex: Male

DRUGS (1)
  1. SYMBICORT [Suspect]
     Active Substance: BUDESONIDE\FORMOTEROL FUMARATE DIHYDRATE
     Indication: CHRONIC OBSTRUCTIVE PULMONARY DISEASE
     Dosage: 160 UG/INHAL, 2 PUFFS TWICE DAILY
     Route: 055
     Dates: start: 2005

REACTIONS (5)
  - Intentional device misuse [Unknown]
  - Dyspnoea [Unknown]
  - Dizziness [Unknown]
  - Device failure [Unknown]
  - Thinking abnormal [Unknown]
